FAERS Safety Report 22350953 (Version 1)
Quarter: 2023Q2

REPORT INFORMATION
  Report Type: Spontaneous
  Country: US (occurrence: US)
  Receive Date: 20230522
  Receipt Date: 20230522
  Transmission Date: 20230722
  Serious: Yes (Other)
  Sender: FDA-Public Use
  Company Number: US-JUBILANT CADISTA PHARMACEUTICALS-2023JUB00193

PATIENT
  Age: 28 Year
  Sex: Male

DRUGS (3)
  1. DROSPIRENONE AND ETHINYL ESTRADIOL [Suspect]
     Active Substance: DROSPIRENONE\ETHINYL ESTRADIOL
     Indication: Transgender hormonal therapy
     Dosage: UNK
  2. SPIRONOLACTONE [Suspect]
     Active Substance: SPIRONOLACTONE
     Indication: Transgender hormonal therapy
     Dosage: UNK
  3. PROGESTERONE [Suspect]
     Active Substance: PROGESTERONE
     Indication: Transgender hormonal therapy
     Dosage: UNK

REACTIONS (2)
  - Disease progression [Unknown]
  - Keratoconus [Unknown]
